FAERS Safety Report 8793402 (Version 2)
Quarter: 2012Q4

REPORT INFORMATION
  Report Type: 
  Country: IE (occurrence: IE)
  Receive Date: 20120918
  Receipt Date: 20120926
  Transmission Date: 20130627
  Serious: Yes (Other)
  Sender: FDA-Public Use
  Company Number: PHHY2012IE080134

PATIENT
  Sex: Female

DRUGS (2)
  1. GLIVEC [Suspect]
     Indication: CHRONIC MYELOID LEUKAEMIA
  2. TASIGNA [Suspect]

REACTIONS (4)
  - Peripheral ischaemia [Unknown]
  - Raynaud^s phenomenon [Unknown]
  - Full blood count increased [Unknown]
  - Muscle spasms [Not Recovered/Not Resolved]
